FAERS Safety Report 14756890 (Version 2)
Quarter: 2019Q2

REPORT INFORMATION
  Report Type: Spontaneous
  Country: DE (occurrence: DE)
  Receive Date: 20180413
  Receipt Date: 20190412
  Transmission Date: 20190711
  Serious: Yes (Hospitalization, Other)
  Sender: FDA-Public Use
  Company Number: DE-ALKEM LABORATORIES LIMITED-DE-ALKEM-2018-01983

PATIENT
  Age: 34 Year
  Sex: Male

DRUGS (8)
  1. QUETIAPINE FUMARATE. [Suspect]
     Active Substance: QUETIAPINE FUMARATE
     Indication: PRODUCT USED FOR UNKNOWN INDICATION
     Dosage: 1 DF, UNK {1 DF = UP TO 400MG 11-AUG (YEAR UNKNOWN) TO 09-SEP-2016,100 TO 300 MG ON 14-DEC-2016,U}
     Route: 048
     Dates: start: 20160909
  2. APRIPRAZOLE [Suspect]
     Active Substance: ARIPIPRAZOLE
     Dosage: 1 DF, UNK (1 DF = UPTO 30 MG FROM 11-AUG (YEAR UNKNOWN) TO09-SEP-2016,5 MGTO10 MG(14-DEC-2016 TO 21
     Route: 048
     Dates: start: 20161214, end: 20161214
  3. QUETIAPINE FUMARATE. [Suspect]
     Active Substance: QUETIAPINE FUMARATE
     Dosage: 1 DF, UNK {1 DF = UP TO 400MG 11-AUG (YEAR UNKNOWN) TO 09-SEP-2016,100 TO 300 MG ON 14-DEC-2016,U}
     Route: 048
     Dates: start: 20161214
  4. APRIPRAZOLE [Suspect]
     Active Substance: ARIPIPRAZOLE
     Indication: PRODUCT USED FOR UNKNOWN INDICATION
     Dosage: 1 DF,UNK (1 DF = UPTO 30 MG FROM 11-AUG (YEAR UNKNOWN) TO09-SEP-2016,5 MGTO10 MG(14-DEC-2016 TO 21
     Route: 048
     Dates: start: 20160909
  5. KALIUM-DURILES [Concomitant]
     Active Substance: POTASSIUM
     Indication: PRODUCT USED FOR UNKNOWN INDICATION
     Dosage: 1 DF, UNK (1 DF,1 SACHET)
     Route: 048
     Dates: start: 20161214
  6. QUETIAPINE FUMARATE. [Suspect]
     Active Substance: QUETIAPINE FUMARATE
     Dosage: 1 DF, UNK {1 DF = UP TO 400MG 11-AUG (YEAR UNKNOWN) TO 09-SEP-2016,100 TO 300 MG ON 14-DEC-2016,U}
     Route: 048
     Dates: start: 20170207
  7. APRIPRAZOLE [Suspect]
     Active Substance: ARIPIPRAZOLE
     Dosage: 20 MG,UNK 1 DF,UNK (1 DF = UPTO 30 MG FROM 11-AUG (YEAR UNKNOWN) TO09-SEP-2016,5 MGTO10 MG(14-DEC-21
     Route: 048
     Dates: start: 20161222
  8. APRIPRAZOLE [Suspect]
     Active Substance: ARIPIPRAZOLE
     Dosage: 1 DF, UNK (1 DF = UPTO 30 MG FROM 11-AUG (YEAR UNKNOWN) TO09-SEP-2016,5 MGTO10 MG(14-DEC-2016 TO 21
     Route: 048
     Dates: start: 20161214, end: 20161221

REACTIONS (2)
  - Seizure [Recovered/Resolved]
  - Treatment noncompliance [Unknown]

NARRATIVE: CASE EVENT DATE: 20161215
